FAERS Safety Report 21850066 (Version 1)
Quarter: 2023Q1

REPORT INFORMATION
  Report Type: Spontaneous
  Country: IT (occurrence: IT)
  Receive Date: 20230111
  Receipt Date: 20230111
  Transmission Date: 20230418
  Serious: Yes (Life-Threatening, Other)
  Sender: FDA-Public Use
  Company Number: None

PATIENT
  Age: 46 Year
  Sex: Male
  Weight: 96 kg

DRUGS (1)
  1. IBUPROFEN [Suspect]
     Active Substance: IBUPROFEN
     Indication: Back pain
     Dosage: UNK, DOSAGE NOT KNOWN
     Route: 048
     Dates: start: 20220112, end: 20220112

REACTIONS (4)
  - Anaphylactic reaction [Recovering/Resolving]
  - Sensation of foreign body [Recovering/Resolving]
  - Dysphonia [Recovering/Resolving]
  - Urticaria [Recovering/Resolving]

NARRATIVE: CASE EVENT DATE: 20220112
